FAERS Safety Report 25979424 (Version 1)
Quarter: 2025Q4

REPORT INFORMATION
  Report Type: Other
  Country: GB (occurrence: GB)
  Receive Date: 20251030
  Receipt Date: 20251030
  Transmission Date: 20260118
  Serious: Yes (Hospitalization, Other)
  Sender: MACLEODS
  Company Number: GB-MHRA-MIDB-219a7381-ee32-451a-9802-e8eef705bc9a

PATIENT

DRUGS (4)
  1. TOLTERODINE [Suspect]
     Active Substance: TOLTERODINE
     Indication: Product used for unknown indication
     Route: 065
  2. COCODAMOL [Concomitant]
     Active Substance: ACETAMINOPHEN\CODEINE PHOSPHATE
     Dosage: 30/500MG 1-2 QDS PRN
     Route: 065
  3. Calcichew D3 forte 1 BD [Concomitant]
     Indication: Product used for unknown indication
     Route: 065
  4. CHOLECALCIFEROL [Concomitant]
     Active Substance: CHOLECALCIFEROL
     Indication: Product used for unknown indication
     Dosage: 20,000 UNITS ONCE A MONTH
     Route: 065

REACTIONS (1)
  - Bladder spasm [Unknown]
